FAERS Safety Report 8406185-4 (Version None)
Quarter: 2012Q2

REPORT INFORMATION
  Report Type: 
  Country: None (occurrence: None)
  Receive Date: 20120604
  Receipt Date: 20120526
  Transmission Date: 20120825
  Serious: Yes (Hospitalization)
  Sender: FDA-Public Use
  Company Number: US-BAYER-2012-032583

PATIENT
  Age: 27 Year
  Sex: Female
  Weight: 40.816 kg

DRUGS (19)
  1. YAZ [Suspect]
     Dosage: UNK
     Dates: start: 20030401, end: 20040601
  2. PREDNISONE [Concomitant]
     Indication: COLITIS ULCERATIVE
     Dosage: 20 MG, TID
     Route: 048
     Dates: start: 20040501
  3. LEXAPRO [Concomitant]
  4. AVELOX [Concomitant]
     Indication: PILONIDAL CYST
  5. ROWASA [Concomitant]
     Indication: CROHN'S DISEASE
     Dosage: UNK
     Dates: start: 20010101
  6. CALCIUM CARBONATE [Concomitant]
  7. ASACOL [Concomitant]
  8. MULTI-VITAMINS [Concomitant]
  9. MAGNESIUM OXIDE [Concomitant]
  10. METRONIDAZOLE [Concomitant]
     Dosage: 500 MG, TID
     Route: 048
     Dates: start: 20040501
  11. MERCAPTOPURINE [Concomitant]
     Indication: COLITIS ULCERATIVE
     Dosage: 75 MG, OM
     Dates: start: 20040615
  12. POTASSIUM CHLORIDE [Concomitant]
     Dosage: UNK
     Dates: start: 20010101, end: 20100101
  13. FLAGYL [Concomitant]
     Indication: COLITIS ULCERATIVE
  14. HYDROCORTISONE [Concomitant]
     Route: 042
  15. YASMIN [Suspect]
     Dosage: UNK
     Dates: start: 20030401, end: 20040601
  16. NEXIUM [Concomitant]
  17. RED BLOOD CELLS [Concomitant]
  18. CANASA [Concomitant]
     Dosage: UNK
     Dates: start: 20010101
  19. PERIPHERAL PARENTERAL NUTRITION [Concomitant]

REACTIONS (3)
  - DEEP VEIN THROMBOSIS [None]
  - INJURY [None]
  - PAIN [None]
